FAERS Safety Report 22179481 (Version 2)
Quarter: 2023Q2

REPORT INFORMATION
  Report Type: Report from Study
  Country: US (occurrence: US)
  Receive Date: 20230406
  Receipt Date: 20230425
  Transmission Date: 20230722
  Serious: Yes (Hospitalization)
  Sender: FDA-Public Use
  Company Number: US-SANOFI-01559482

PATIENT
  Age: 52 Year
  Sex: Female

DRUGS (2)
  1. DUPILUMAB [Suspect]
     Active Substance: DUPILUMAB
     Indication: Dermatitis atopic
     Dosage: 600 MG, 1X
     Route: 058
     Dates: start: 20230310, end: 20230310
  2. DUPILUMAB [Suspect]
     Active Substance: DUPILUMAB
     Dosage: 300 MG, QOW
     Route: 058
     Dates: start: 2023

REACTIONS (6)
  - Skin ulcer [Recovering/Resolving]
  - Blister [Recovering/Resolving]
  - Skin weeping [Recovering/Resolving]
  - Skin discharge [Unknown]
  - Peripheral swelling [Unknown]
  - Food allergy [Unknown]

NARRATIVE: CASE EVENT DATE: 20230101
